FAERS Safety Report 5005774-7 (Version None)
Quarter: 2006Q1

REPORT INFORMATION
  Report Type: 
  Country: None (occurrence: None)
  Receive Date: 20060320
  Receipt Date: 20060117
  Transmission Date: 20060701
  Serious: Yes (Hospitalization, Other)
  Sender: FDA-Public Use
  Company Number: 2006-01-1032

PATIENT
  Age: 44 Year
  Sex: Female
  Weight: 58.0604 kg

DRUGS (1)
  1. PEG-INTRON [Suspect]
     Indication: HEPATITIS C
     Dates: start: 20040301, end: 20041101

REACTIONS (5)
  - AGGRESSION [None]
  - HALLUCINATION, AUDITORY [None]
  - OVERDOSE [None]
  - SUICIDAL IDEATION [None]
  - WEIGHT DECREASED [None]
